FAERS Safety Report 12990447 (Version 1)
Quarter: 2016Q4

REPORT INFORMATION
  Report Type: Report from Study
  Country: US (occurrence: US)
  Receive Date: 20161201
  Receipt Date: 20161201
  Transmission Date: 20170207
  Serious: Yes (Hospitalization, Other)
  Sender: FDA-Public Use
  Company Number: US-AMGEN-USASL2016147196

PATIENT
  Age: 57 Year
  Sex: Female

DRUGS (4)
  1. XARELTO [Concomitant]
     Active Substance: RIVAROXABAN
  2. CORTISOL [Concomitant]
     Active Substance: HYDROCORTISONE
  3. NPLATE [Suspect]
     Active Substance: ROMIPLOSTIM
     Indication: IMMUNE THROMBOCYTOPENIC PURPURA
     Dosage: UNK
     Route: 065
  4. TOPROL XL [Concomitant]
     Active Substance: METOPROLOL SUCCINATE
     Indication: SUPRAVENTRICULAR TACHYCARDIA

REACTIONS (21)
  - Neuropathy peripheral [Unknown]
  - Rash [Unknown]
  - Dry skin [Unknown]
  - Sleep disorder [Unknown]
  - Thrombosis [Unknown]
  - Adverse event [Unknown]
  - Peroneal nerve palsy [Unknown]
  - Skin discolouration [Unknown]
  - Headache [Recovered/Resolved]
  - Candida infection [Unknown]
  - Feeling abnormal [Unknown]
  - Impaired driving ability [Unknown]
  - Cellulitis [Unknown]
  - Swelling face [Unknown]
  - Abdominal distension [Unknown]
  - Dyspnoea [Unknown]
  - Gait disturbance [Not Recovered/Not Resolved]
  - Pain in extremity [Unknown]
  - Paraesthesia [Unknown]
  - Aphasia [Unknown]
  - Contusion [Unknown]

NARRATIVE: CASE EVENT DATE: 201610
